FAERS Safety Report 11145086 (Version 3)
Quarter: 2015Q2

REPORT INFORMATION
  Report Type: Spontaneous
  Country: JP (occurrence: JP)
  Receive Date: 20150528
  Receipt Date: 20150625
  Transmission Date: 20150821
  Serious: Yes (Other)
  Sender: FDA-Public Use
  Company Number: JP-ASTELLAS-2015JP009625

PATIENT
  Age: 25 Year
  Sex: Female
  Weight: 46 kg

DRUGS (13)
  1. PREDNISOLONE. [Suspect]
     Active Substance: PREDNISOLONE
     Indication: LUPUS NEPHRITIS
     Route: 048
     Dates: start: 20091005
  2. BREDININ [Concomitant]
     Active Substance: MIZORIBINE
     Indication: LUPUS NEPHRITIS
     Route: 048
     Dates: start: 20101130, end: 20121227
  3. PROGRAF [Suspect]
     Active Substance: TACROLIMUS\TACROLIMUS ANHYDROUS
     Indication: LUPUS NEPHRITIS
     Route: 048
     Dates: start: 20101115
  4. FLOMOX                             /01418603/ [Concomitant]
     Indication: BRONCHITIS
     Route: 048
     Dates: start: 20130306, end: 20130312
  5. BONALON [Concomitant]
     Active Substance: ALENDRONATE SODIUM
     Indication: OSTEOPOROSIS PROPHYLAXIS
     Route: 048
     Dates: start: 20091005, end: 20130212
  6. MEIACT [Concomitant]
     Active Substance: CEFDITOREN PIVOXIL
     Indication: BRONCHITIS
     Route: 048
     Dates: start: 20130417, end: 20130423
  7. FERROUS SULFATE [Concomitant]
     Active Substance: FERROUS SULFATE\FERROUS SULFATE, DRIED
     Indication: IRON DEFICIENCY ANAEMIA
     Route: 048
     Dates: start: 20130611, end: 20130612
  8. GASTER [Suspect]
     Active Substance: FAMOTIDINE
     Indication: PROPHYLAXIS AGAINST GASTROINTESTINAL ULCER
     Route: 048
     Dates: start: 20120606
  9. BAYASPIRIN [Concomitant]
     Active Substance: ASPIRIN
     Indication: ANTIPHOSPHOLIPID ANTIBODIES POSITIVE
     Route: 048
     Dates: start: 20091027, end: 20130609
  10. LEXOTAN [Concomitant]
     Active Substance: BROMAZEPAM
     Indication: DEPRESSION
     Route: 048
     Dates: start: 20101125
  11. UTEMERIN [Concomitant]
     Active Substance: RITODRINE
     Indication: PROPHYLAXIS OF ABORTION
     Route: 048
     Dates: start: 20130626, end: 20130716
  12. EURODIN                            /00401202/ [Concomitant]
     Active Substance: DIHYDROERGOCRISTINE MESYLATE
     Indication: INSOMNIA
     Route: 048
     Dates: start: 20110510, end: 20130212
  13. REFLEX                             /00021218/ [Concomitant]
     Indication: DEPRESSION
     Route: 048
     Dates: start: 20110518

REACTIONS (5)
  - Maternal exposure during pregnancy [Unknown]
  - Bronchitis [Recovered/Resolved]
  - Iron deficiency anaemia [Recovering/Resolving]
  - Off label use [Unknown]
  - Premature delivery [Unknown]

NARRATIVE: CASE EVENT DATE: 2012
